FAERS Safety Report 10382608 (Version 3)
Quarter: 2014Q3

REPORT INFORMATION
  Report Type: Spontaneous
  Country: JP (occurrence: JP)
  Receive Date: 20140813
  Receipt Date: 20140829
  Transmission Date: 20150326
  Serious: Yes (Death, Hospitalization, Other)
  Sender: FDA-Public Use
  Company Number: JP-PFIZER INC-2014213389

PATIENT
  Age: 60 Year
  Sex: Female

DRUGS (9)
  1. BFLUID [Concomitant]
     Active Substance: AMINO ACIDS\DEXTROSE\ELECTROLYTES NOS\VITAMINS
     Indication: DEHYDRATION
     Dosage: 500 ML, DAILY
     Route: 041
     Dates: start: 20140707, end: 20140714
  2. ZOSYN [Suspect]
     Active Substance: PIPERACILLIN SODIUM\TAZOBACTAM SODIUM
     Indication: ENTERITIS INFECTIOUS
     Dosage: 4.5 G, 2X/DAY
     Route: 041
     Dates: start: 20140707, end: 20140715
  3. SOLITA-T3 [Concomitant]
     Active Substance: POTASSIUM CHLORIDE\SODIUM CHLORIDE\SODIUM LACTATE
     Indication: DEHYDRATION
     Dosage: 1000 ML, DAILY
     Route: 041
     Dates: start: 20140707
  4. L-ASPARTATE POTASSIUM [Concomitant]
     Indication: HYPOKALAEMIA
     Dosage: 2 A DAILY
     Route: 041
     Dates: start: 20140707, end: 20140713
  5. SOLITA-T3 [Concomitant]
     Active Substance: POTASSIUM CHLORIDE\SODIUM CHLORIDE\SODIUM LACTATE
     Indication: HYPOTENSION
  6. PHYSIO 140 [Concomitant]
     Indication: DEHYDRATION
     Dosage: 500 ML, DAILY
     Route: 041
     Dates: start: 20140707, end: 20140714
  7. PHYSIO 140 [Concomitant]
     Indication: HYPOTENSION
  8. BFLUID [Concomitant]
     Active Substance: AMINO ACIDS\DEXTROSE\ELECTROLYTES NOS\VITAMINS
     Indication: HYPOTENSION
  9. LASIX [Concomitant]
     Active Substance: FUROSEMIDE
     Indication: DIURETIC THERAPY
     Dosage: 20 MG, DAILY
     Route: 042
     Dates: start: 20140709, end: 20140724

REACTIONS (1)
  - Pseudomembranous colitis [Fatal]

NARRATIVE: CASE EVENT DATE: 20140715
